FAERS Safety Report 9221025 (Version 3)
Quarter: 2013Q3

REPORT INFORMATION
  Report Type: Spontaneous
  Country: FR (occurrence: FR)
  Receive Date: 20130409
  Receipt Date: 20130809
  Transmission Date: 20140515
  Serious: Yes (Hospitalization)
  Sender: FDA-Public Use
  Company Number: FR-VERTEX PHARMACEUTICALS INC.-2013-004665

PATIENT
  Age: 48 Year
  Sex: Male
  Weight: 74 kg

DRUGS (6)
  1. INCIVO [Suspect]
     Indication: HEPATITIS C
     Dosage: 2250 DF, BID, TABLET
     Route: 048
     Dates: start: 20121029, end: 20130118
  2. PEGINTERFERON ALFA 2A [Suspect]
     Indication: HEPATITIS C
     Dosage: DOSAGE FORM: UNSPECIFIED
     Route: 058
     Dates: start: 20121029
  3. RIBAVIRIN [Suspect]
     Indication: HEPATITIS C
     Dosage: DOSAGE FORM: UNSPECIFIED
     Route: 048
     Dates: start: 20121029
  4. XYZALL [Concomitant]
     Indication: PRURITUS
     Dosage: DOSAGE FORM: UNSPECIFIED
     Route: 048
     Dates: start: 20121106, end: 20130131
  5. DEXERYL [Concomitant]
     Indication: PRURITUS
     Dosage: DOSAGE FORM: UNSPECIFIED
     Dates: start: 20121106, end: 20130131
  6. DEXPANTHENOL [Concomitant]
     Indication: ANAL PRURITUS
     Dosage: DOSAGE FORM: UNSPECIFIED
     Dates: start: 20121106, end: 20130102

REACTIONS (2)
  - Anaemia [Recovered/Resolved]
  - Off label use [Unknown]
